FAERS Safety Report 4690021-6 (Version None)
Quarter: 2005Q2

REPORT INFORMATION
  Report Type: 
  Country: None (occurrence: None)
  Receive Date: 20050614
  Receipt Date: 20050531
  Transmission Date: 20051028
  Serious: Yes (Death, Disabling, Other)
  Sender: FDA-Public Use
  Company Number: 2005072441

PATIENT
  Age: 59 Year
  Sex: Male

DRUGS (7)
  1. CABERGOLINE [Suspect]
     Indication: PARKINSON'S DISEASE
     Dosage: SEE IMAGE
     Route: 048
     Dates: start: 19991005, end: 19991019
  2. CABERGOLINE [Suspect]
     Indication: PARKINSON'S DISEASE
     Dosage: SEE IMAGE
     Route: 048
     Dates: start: 19991020, end: 19991101
  3. CABERGOLINE [Suspect]
     Indication: PARKINSON'S DISEASE
     Dosage: SEE IMAGE
     Route: 048
     Dates: start: 19991102, end: 20041119
  4. EC DOPRAL (BENSERAZIDE HYDROCHLORIDE, LEVODOPA) [Concomitant]
  5. PERMAX [Concomitant]
  6. URALYT (ARNICA EXTRACT, CONVALLARIA GLYCOSIDES, ECHINACEA ANGUSTIFOLIA [Concomitant]
  7. ALLOPURINOL [Concomitant]

REACTIONS (4)
  - GLOMERULONEPHRITIS PROLIFERATIVE [None]
  - HALLUCINATION [None]
  - MYOCARDIAL INFARCTION [None]
  - RENAL IMPAIRMENT [None]
